FAERS Safety Report 7259967-9 (Version None)
Quarter: 2011Q1

REPORT INFORMATION
  Report Type: 
  Country: None (occurrence: None)
  Receive Date: 20110130
  Receipt Date: 20101006
  Transmission Date: 20110831
  Serious: No
  Sender: FDA-Public Use
  Company Number: US-ABBOTT-10P-163-0676318-00

PATIENT
  Sex: Female

DRUGS (8)
  1. HYDROCHLOROTHIAZIDE [Concomitant]
     Indication: HYPERTENSION
     Route: 048
  2. JANUVASET [Concomitant]
     Indication: DIABETES MELLITUS
     Dosage: TAKING SAMPLES FROM MD OFC-PER MD TO ADJ DOSE OF JANUVIA AND METF
     Route: 048
  3. METFORMIN [Concomitant]
     Indication: DIABETES MELLITUS
     Route: 048
  4. LISINOPRIL [Concomitant]
     Indication: HYPERTENSION
     Route: 048
  5. GLIMIPERMIDE [Concomitant]
     Indication: DIABETES MELLITUS
     Route: 048
  6. HUMIRA [Suspect]
     Indication: RHEUMATOID ARTHRITIS
     Route: 058
     Dates: start: 20080101
  7. JANUVIA [Concomitant]
     Indication: DIABETES MELLITUS
     Route: 048
  8. GEMFIBROZIL [Concomitant]
     Indication: BLOOD CHOLESTEROL INCREASED
     Route: 048

REACTIONS (3)
  - INJECTION SITE HAEMORRHAGE [None]
  - DRUG EFFECT DECREASED [None]
  - INJECTION SITE PAIN [None]
